FAERS Safety Report 5613885-8 (Version None)
Quarter: 2008Q1

REPORT INFORMATION
  Report Type: 
  Country: None (occurrence: None)
  Receive Date: 20080205
  Receipt Date: 20080122
  Transmission Date: 20080703
  Serious: Yes (Other)
  Sender: FDA-Public Use
  Company Number: GB-ELI_LILLY_AND_COMPANY-GB200801000065

PATIENT
  Age: 38 Year
  Sex: Female

DRUGS (1)
  1. FLUOXETINE [Suspect]
     Indication: STRESS
     Dosage: 40 MG, DAILY (1/D)
     Route: 048

REACTIONS (2)
  - HYPERTENSION [None]
  - RETINAL VEIN OCCLUSION [None]
